FAERS Safety Report 6220603-1 (Version None)
Quarter: 2009Q2

REPORT INFORMATION
  Report Type: 
  Country: None (occurrence: None)
  Receive Date: 20090610
  Receipt Date: 20090528
  Transmission Date: 20091009
  Serious: Yes (Disabling)
  Sender: FDA-Public Use
  Company Number: FR-ROCHE-562007

PATIENT
  Sex: Male

DRUGS (6)
  1. PEG-INTERFERON ALFA 2A (RO 25-8310) [Suspect]
     Route: 058
     Dates: start: 19990520, end: 20000420
  2. RIBAVIRIN [Suspect]
     Route: 048
     Dates: start: 19990520, end: 20000420
  3. RIVOTRIL [Concomitant]
  4. REFRESH [Concomitant]
  5. PROZAC [Concomitant]
  6. IXPRIM [Concomitant]

REACTIONS (2)
  - MULTIPLE SCLEROSIS [None]
  - SJOGREN'S SYNDROME [None]
